FAERS Safety Report 25740109 (Version 2)
Quarter: 2025Q3

REPORT INFORMATION
  Report Type: Spontaneous
  Country: BR (occurrence: BR)
  Receive Date: 20250829
  Receipt Date: 20250904
  Transmission Date: 20251020
  Serious: Yes (Death, Other)
  Sender: MUNDIPHARMA EDO
  Company Number: BR-NAPPMUNDI-GBR-2025-0128368

PATIENT
  Sex: Female

DRUGS (1)
  1. REZAFUNGIN ACETATE [Suspect]
     Active Substance: REZAFUNGIN ACETATE
     Indication: Post procedural infection
     Dates: start: 20250814, end: 20250814

REACTIONS (1)
  - Death [Fatal]

NARRATIVE: CASE EVENT DATE: 20250820
